FAERS Safety Report 5789347-4 (Version None)
Quarter: 2008Q2

REPORT INFORMATION
  Report Type: 
  Country: None (occurrence: None)
  Receive Date: 20080626
  Receipt Date: 20080619
  Transmission Date: 20081010
  Serious: Yes (Other)
  Sender: FDA-Public Use
  Company Number: US-TEVA-173114USA

PATIENT

DRUGS (1)
  1. AZILECT [Suspect]

REACTIONS (1)
  - SEROTONIN SYNDROME [None]
